FAERS Safety Report 4755297-5 (Version None)
Quarter: 2005Q3

REPORT INFORMATION
  Report Type: 
  Country: None (occurrence: None)
  Receive Date: 20050829
  Receipt Date: 20050815
  Transmission Date: 20060218
  Serious: Yes (Hospitalization)
  Sender: FDA-Public Use
  Company Number: NO-MERCK-0508NOR00016

PATIENT
  Age: 62 Year
  Sex: Male

DRUGS (8)
  1. VIOXX [Suspect]
     Indication: NON-CARDIAC CHEST PAIN
     Route: 048
     Dates: start: 20011205, end: 20020918
  2. VIOXX [Suspect]
     Route: 048
     Dates: start: 20020919, end: 20040930
  3. ASPIRIN AND MAGNESIUM OXIDE [Concomitant]
     Route: 048
  4. ACETAMINOPHEN AND CODEINE PHOSPHATE [Concomitant]
     Route: 065
  5. LEVOTHYROXINE SODIUM [Concomitant]
     Indication: HYPOTHYROIDISM
     Route: 048
  6. METOPROLOL TARTRATE [Concomitant]
     Route: 048
  7. CLOPIDOGREL BISULFATE [Concomitant]
     Route: 048
  8. METOPROLOL TARTRATE [Concomitant]
     Route: 048
     Dates: start: 20030401

REACTIONS (8)
  - ANGINA PECTORIS [None]
  - AORTIC ANEURYSM [None]
  - AORTIC DILATATION [None]
  - DIZZINESS [None]
  - HYPERSENSITIVITY [None]
  - MYOCARDIAL INFARCTION [None]
  - PROSTATISM [None]
  - TRANSIENT ISCHAEMIC ATTACK [None]
